FAERS Safety Report 9994750 (Version 1)
Quarter: 2014Q1

REPORT INFORMATION
  Report Type: Spontaneous
  Country: US (occurrence: None)
  Receive Date: 20140307
  Receipt Date: 20140307
  Transmission Date: 20141002
  Serious: Yes (Life-Threatening, Other)
  Sender: FDA-Public Use
  Company Number: None

PATIENT
  Age: 49 Year
  Sex: Male
  Weight: 74.84 kg

DRUGS (4)
  1. SPIRIVA [Suspect]
     Indication: ASTHMA
     Dosage: 2 PUFFS
     Route: 048
     Dates: start: 20131120, end: 20140301
  2. SLUTICASONE PROPIONATE [Concomitant]
  3. MONTELUKAST SOD [Concomitant]
  4. GUAIIFENESIN [Concomitant]

REACTIONS (9)
  - Dry eye [None]
  - Thirst [None]
  - Dry mouth [None]
  - Abdominal distension [None]
  - Infrequent bowel movements [None]
  - Dysuria [None]
  - Abnormal faeces [None]
  - Proctalgia [None]
  - Intestinal obstruction [None]
